FAERS Safety Report 5579093-4 (Version None)
Quarter: 2007Q4

REPORT INFORMATION
  Report Type: 
  Country: None (occurrence: None)
  Receive Date: 20071228
  Receipt Date: 20071228
  Transmission Date: 20080405
  Serious: Yes (Death)
  Sender: FDA-Public Use
  Company Number: None

PATIENT
  Age: 32 Year
  Sex: Male
  Weight: 74.8435 kg

DRUGS (1)
  1. FENTANYL [Suspect]
     Indication: CHOLECYSTITIS
     Dosage: 25 MCG   TRANSDERMAL
     Route: 062

REACTIONS (3)
  - ACCIDENTAL OVERDOSE [None]
  - GASTRIC ULCER [None]
  - LOSS OF CONSCIOUSNESS [None]
